FAERS Safety Report 8045235-4 (Version None)
Quarter: 2012Q1

REPORT INFORMATION
  Report Type: 
  Country: None (occurrence: None)
  Receive Date: 20120113
  Receipt Date: 20120102
  Transmission Date: 20120608
  Serious: Yes (Hospitalization)
  Sender: FDA-Public Use
  Company Number: FR-BRISTOL-MYERS SQUIBB COMPANY-16328973

PATIENT
  Age: 21 Year
  Sex: Male
  Weight: 72 kg

DRUGS (12)
  1. ETOPOPHOS PRESERVATIVE FREE [Suspect]
     Indication: HODGKIN'S DISEASE
     Dosage: FROM D1 TO D3,COURSE 1,COURSE 2 ON 12DEC11,14DEC11;D2
     Route: 042
     Dates: start: 20111122
  2. ZOFRAN [Suspect]
     Dosage: 1 DF : 1 INTAKE,14DEC11;D2
     Route: 048
     Dates: start: 20111122
  3. BACTRIM DS [Suspect]
     Dosage: 1 DF : 1 TAB
  4. DOXORUBICIN HCL [Suspect]
     Indication: HODGKIN'S DISEASE
     Dosage: D1
  5. BLEOMYCIN SULFATE [Suspect]
     Indication: HODGKIN'S DISEASE
     Dosage: ON D8
  6. MATULANE [Suspect]
     Indication: HODGKIN'S DISEASE
     Dosage: FROM D1 TO D7,14DEC11;D2,RECEIVED UNTIL 06-DEC-2011 INSTEAD OF 28-NOV-2011,
     Route: 048
     Dates: start: 20111122, end: 20111206
  7. VINCRISTINE [Suspect]
     Indication: HODGKIN'S DISEASE
     Dosage: ON D8
  8. PREDNISONE TAB [Suspect]
     Indication: PREMEDICATION
     Dosage: FROM D1 TO D10
  9. EMEND [Suspect]
  10. VALACYCLOVIR HYDROCHLORIDE [Suspect]
  11. CYCLOPHOSPHAMIDE [Suspect]
     Indication: HODGKIN'S DISEASE
     Dosage: D1
  12. MESNA [Suspect]
     Dosage: D1

REACTIONS (3)
  - RASH MORBILLIFORM [None]
  - PYREXIA [None]
  - TRANSAMINASES INCREASED [None]
